FAERS Safety Report 7531252 (Version 5)
Quarter: 2012Q4

REPORT INFORMATION
  Report Type: 
  Country: US (occurrence: US)
  Receive Date: 20100806
  Receipt Date: 20120914
  Transmission Date: 20130627
  Serious: Yes (Other)
  Sender: FDA-Public Use
  Company Number: US-BAYER-201029615NA

PATIENT
  Age: 20 Year
  Sex: Female
  Weight: 54.42 kg

DRUGS (17)
  1. YAZ [Suspect]
     Indication: ORAL CONTRACEPTION
     Dosage: UNK UNK, QD
     Dates: start: 200611, end: 200711
  2. MULTIVITAMINS [Concomitant]
     Dosage: UNK UNK, QD
     Route: 048
  3. ANAPROX DS [Concomitant]
     Indication: MUSCLE SPASMS
     Dosage: 550mg 1 every 12 hours
     Route: 048
  4. ORTHO-TRI-CYCLEN 28 [Concomitant]
     Dosage: UNK UNK, QD
     Route: 048
  5. DARVOCET-N [Concomitant]
     Indication: PAIN
     Dosage: 100-650mg 1every 4 hours as needed
  6. ZITHROMAX Z-PACK [Concomitant]
     Indication: PELVIC PAIN
  7. INDOMETHACIN [Concomitant]
     Indication: SACROILIITIS
     Dosage: 25 mg, 2-3 times/day
  8. NAPROXEN [Concomitant]
  9. ENBREL [Concomitant]
  10. ASPIRIN [Concomitant]
     Dosage: 81 mg, QD
  11. TYLENOL [Concomitant]
     Indication: ARTHRALGIA
     Dosage: 650 mg, QID
  12. POTASSIUM [Concomitant]
     Dosage: 99 mg, QD
  13. VITAMIN C [Concomitant]
     Dosage: 1000 mg, BID
  14. LORTAB [Concomitant]
     Indication: PAIN
     Dosage: /2 tablet by mouth 4 times daily as needed
  15. TORADOL [Concomitant]
     Indication: PAIN
     Dosage: 1 tablet 4 times daily as needed
  16. ATIVAN [Concomitant]
  17. POTASSIUM CHLORIDE [Concomitant]

REACTIONS (5)
  - Cerebrovascular accident [None]
  - Cholecystitis chronic [None]
  - Gallbladder disorder [None]
  - Injury [None]
  - Pancreatitis [None]
